FAERS Safety Report 15860693 (Version 2)
Quarter: 2019Q1

REPORT INFORMATION
  Report Type: Report from Study
  Country: None (occurrence: US)
  Receive Date: 20190124
  Receipt Date: 20190222
  Transmission Date: 20190417
  Serious: Yes (Other)
  Sender: FDA-Public Use
  Company Number: US-ABBVIE-19S-163-2633446-00

PATIENT
  Age: 63 Year
  Sex: Male
  Weight: 72.64 kg

DRUGS (6)
  1. LAMICTAL [Concomitant]
     Active Substance: LAMOTRIGINE
     Indication: BIPOLAR DISORDER
  2. METHADONE [Concomitant]
     Active Substance: METHADONE HYDROCHLORIDE
     Indication: BACK PAIN
  3. ADDERALL [Concomitant]
     Active Substance: AMPHETAMINE ASPARTATE\AMPHETAMINE SULFATE\DEXTROAMPHETAMINE SACCHARATE\DEXTROAMPHETAMINE SULFATE
     Indication: ATTENTION DEFICIT/HYPERACTIVITY DISORDER
  4. AMBIEN [Concomitant]
     Active Substance: ZOLPIDEM TARTRATE
     Indication: INSOMNIA
  5. REMERON [Concomitant]
     Active Substance: MIRTAZAPINE
     Indication: BIPOLAR DISORDER
  6. ANDROGEL [Suspect]
     Active Substance: TESTOSTERONE
     Indication: BLOOD TESTOSTERONE DECREASED
     Route: 061
     Dates: start: 2017, end: 201812

REACTIONS (8)
  - Osteoarthritis [Recovered/Resolved]
  - Procedural pain [Recovering/Resolving]
  - Arthralgia [Recovering/Resolving]
  - Asthenia [Recovering/Resolving]
  - Gait inability [Recovering/Resolving]
  - Nasopharyngitis [Recovering/Resolving]
  - Hot flush [Recovering/Resolving]
  - Depression [Recovering/Resolving]

NARRATIVE: CASE EVENT DATE: 2017
